FAERS Safety Report 4375301-6 (Version None)
Quarter: 2004Q2

REPORT INFORMATION
  Report Type: 
  Country: None (occurrence: None)
  Receive Date: 20040603
  Receipt Date: 20040527
  Transmission Date: 20050107
  Serious: Yes (Disabling, Other)
  Sender: FDA-Public Use
  Company Number: 200312396GDS

PATIENT
  Age: 56 Year
  Sex: Male

DRUGS (1)
  1. AVELOX [Suspect]
     Indication: SINUSITIS
     Dosage: 400 MG, TOTAL DAILY, ORAL
     Route: 048
     Dates: start: 20030601, end: 20030702

REACTIONS (8)
  - DIZZINESS [None]
  - IRIDOCYCLITIS [None]
  - JARISCH-HERXHEIMER REACTION [None]
  - MACULAR OEDEMA [None]
  - PHOTOPHOBIA [None]
  - RETINAL DEPIGMENTATION [None]
  - UVEITIS [None]
  - VISUAL ACUITY REDUCED [None]
